FAERS Safety Report 9197452 (Version 2)
Quarter: 2013Q2

REPORT INFORMATION
  Report Type: Spontaneous
  Country: US (occurrence: US)
  Receive Date: 20130328
  Receipt Date: 20130425
  Transmission Date: 20140414
  Serious: Yes (Other)
  Sender: FDA-Public Use
  Company Number: US-BAYER-2013-038960

PATIENT
  Age: 29 Year
  Sex: Female
  Weight: 82.99 kg

DRUGS (1)
  1. MIRENA [Suspect]
     Indication: CONTRACEPTION
     Dosage: 20 MCG/24HR, CONT
     Route: 015
     Dates: start: 20100607, end: 20130325

REACTIONS (4)
  - Genital haemorrhage [Recovered/Resolved]
  - Device expulsion [None]
  - Pain [Recovered/Resolved]
  - Pelvic pain [Recovered/Resolved]
